FAERS Safety Report 6774469-1 (Version None)
Quarter: 2010Q2

REPORT INFORMATION
  Report Type: 
  Country: None (occurrence: None)
  Receive Date: 20100617
  Receipt Date: 20100604
  Transmission Date: 20101027
  Serious: Yes (Hospitalization, Other)
  Sender: FDA-Public Use
  Company Number: PHHY2010BR36611

PATIENT
  Sex: Female

DRUGS (1)
  1. LEPONEX [Suspect]
     Dosage: 30 TABLETS OF 100 MG
     Route: 048

REACTIONS (9)
  - ASPIRATION BRONCHIAL [None]
  - DYSPNOEA [None]
  - INFECTION [None]
  - INTENTIONAL DRUG MISUSE [None]
  - INTENTIONAL OVERDOSE [None]
  - PNEUMONIA [None]
  - PYREXIA [None]
  - SUICIDE ATTEMPT [None]
  - VOMITING [None]
